FAERS Safety Report 4959046-7 (Version None)
Quarter: 2006Q1

REPORT INFORMATION
  Report Type: 
  Country: None (occurrence: None)
  Receive Date: 20060331
  Receipt Date: 20060320
  Transmission Date: 20060701
  Serious: Yes (Other)
  Sender: FDA-Public Use
  Company Number: JP-BRISTOL-MYERS SQUIBB COMPANY-13322524

PATIENT
  Age: 82 Year
  Sex: Male

DRUGS (7)
  1. MAXIPIME [Suspect]
     Indication: PNEUMONIA
     Route: 042
     Dates: start: 20041225, end: 20050104
  2. MEROPEN [Suspect]
     Route: 042
     Dates: start: 20050104, end: 20050104
  3. SOLDACTONE [Concomitant]
     Route: 042
     Dates: start: 20041225, end: 20050104
  4. LASIX [Concomitant]
     Route: 042
     Dates: start: 20041225, end: 20050104
  5. PIPERACILLIN [Concomitant]
     Route: 042
     Dates: start: 20041221, end: 20041224
  6. MINOPEN [Concomitant]
     Route: 042
     Dates: start: 20041221, end: 20041222
  7. CLINDAMYCIN PHOSPHATE [Concomitant]
     Route: 042
     Dates: start: 20041224, end: 20050104

REACTIONS (1)
  - DRUG ERUPTION [None]
